FAERS Safety Report 13445157 (Version 2)
Quarter: 2017Q2

REPORT INFORMATION
  Report Type: Spontaneous
  Country: US (occurrence: US)
  Receive Date: 20170414
  Receipt Date: 20170516
  Transmission Date: 20170830
  Serious: Yes (Hospitalization, Other)
  Sender: FDA-Public Use
  Company Number: US-TEVA-760635USA

PATIENT
  Age: 16 Year
  Sex: Male
  Weight: 82 kg

DRUGS (2)
  1. PENTAMIDINE [Concomitant]
     Active Substance: PENTAMIDINE
     Route: 042
  2. SYNRIBO [Suspect]
     Active Substance: OMACETAXINE MEPESUCCINATE
     Indication: CHRONIC MYELOID LEUKAEMIA
     Dosage: HOME ADMINISTRATION
     Route: 058
     Dates: start: 20170309, end: 20170316

REACTIONS (5)
  - Lymphadenitis [Unknown]
  - Pancytopenia [Not Recovered/Not Resolved]
  - Blood count abnormal [Not Recovered/Not Resolved]
  - Lymphadenopathy [Recovering/Resolving]
  - Pharyngitis streptococcal [Unknown]

NARRATIVE: CASE EVENT DATE: 20170321
